FAERS Safety Report 23222736 (Version 6)
Quarter: 2024Q2

REPORT INFORMATION
  Report Type: Report from Study
  Country: CA (occurrence: CA)
  Receive Date: 20231123
  Receipt Date: 20240503
  Transmission Date: 20240716
  Serious: Yes (Hospitalization, Other)
  Sender: FDA-Public Use
  Company Number: CA-JNJFOC-20230311087

PATIENT
  Age: 55 Year
  Sex: Female
  Weight: 74 kg

DRUGS (4)
  1. REMICADE [Suspect]
     Active Substance: INFLIXIMAB
     Indication: Crohn^s disease
     Route: 041
     Dates: start: 20220617
  2. REMICADE [Suspect]
     Active Substance: INFLIXIMAB
     Route: 041
  3. REMICADE [Suspect]
     Active Substance: INFLIXIMAB
     Route: 041
  4. TYLENOL [Suspect]
     Active Substance: ACETAMINOPHEN
     Indication: Procedural pain
     Route: 065
     Dates: start: 2023

REACTIONS (13)
  - Bronchitis [Recovering/Resolving]
  - Limb injury [Unknown]
  - Muscle rupture [Unknown]
  - Respiratory arrest [Unknown]
  - Hospitalisation [Unknown]
  - Clostridium difficile infection [Recovered/Resolved]
  - Lower respiratory tract infection [Unknown]
  - Anaphylactic reaction [Not Recovered/Not Resolved]
  - Sinusitis [Unknown]
  - Procedural pain [Unknown]
  - Constipation [Unknown]
  - Influenza [Unknown]
  - Infusion related reaction [Not Recovered/Not Resolved]

NARRATIVE: CASE EVENT DATE: 20230101
